FAERS Safety Report 7072784-8 (Version None)
Quarter: 2010Q4

REPORT INFORMATION
  Report Type: 
  Country: None (occurrence: None)
  Receive Date: 20101028
  Receipt Date: 20101028
  Transmission Date: 20110411
  Serious: No
  Sender: FDA-Public Use
  Company Number: None

PATIENT
  Sex: Female

DRUGS (1)
  1. ZOLINZA [Suspect]
     Dosage: 100MG QID PO
     Route: 048
     Dates: start: 20101012, end: 20101027

REACTIONS (8)
  - ABDOMINAL PAIN [None]
  - DIARRHOEA [None]
  - FATIGUE [None]
  - NAUSEA [None]
  - NOCTURIA [None]
  - PAIN [None]
  - POLYURIA [None]
  - VOMITING [None]
